FAERS Safety Report 13953492 (Version 2)
Quarter: 2017Q3

REPORT INFORMATION
  Report Type: Spontaneous
  Country: US (occurrence: US)
  Receive Date: 20170911
  Receipt Date: 20170920
  Transmission Date: 20171128
  Serious: No
  Sender: FDA-Public Use
  Company Number: US-PFIZER INC-2017391287

PATIENT
  Age: 56 Year
  Sex: Female

DRUGS (3)
  1. XELJANZ XR [Suspect]
     Active Substance: TOFACITINIB CITRATE
     Dosage: UNK
  2. ENBREL [Suspect]
     Active Substance: ETANERCEPT
     Dosage: UNK
  3. METHOTREXATE SODIUM. [Suspect]
     Active Substance: METHOTREXATE SODIUM
     Dosage: 20 MG, WEEKLY
     Route: 058

REACTIONS (21)
  - Pain [Unknown]
  - Nausea [Unknown]
  - Swelling [Unknown]
  - Muscle spasms [Unknown]
  - Myalgia [Unknown]
  - Back pain [Unknown]
  - Weight increased [Unknown]
  - Insomnia [Unknown]
  - Hypoaesthesia [Unknown]
  - Depression [Unknown]
  - Vomiting [Unknown]
  - Musculoskeletal stiffness [Unknown]
  - Fatigue [Unknown]
  - Sinus pain [Unknown]
  - Hyperaesthesia [Unknown]
  - Allodynia [Unknown]
  - Synovitis [Unknown]
  - Asthenia [Unknown]
  - Abdominal pain [Unknown]
  - Paraesthesia [Unknown]
  - Fibromyalgia [Unknown]
